FAERS Safety Report 5157604-0 (Version None)
Quarter: 2006Q4

REPORT INFORMATION
  Report Type: 
  Country: None (occurrence: None)
  Receive Date: 20061127
  Receipt Date: 20061018
  Transmission Date: 20070319
  Serious: Yes (Hospitalization)
  Sender: FDA-Public Use
  Company Number: JP-MERCK-0610USA12035

PATIENT
  Age: 74 Year
  Sex: Female
  Weight: 79 kg

DRUGS (12)
  1. ZOCOR [Suspect]
     Route: 048
     Dates: start: 20020420, end: 20060101
  2. RENIVACE [Concomitant]
     Route: 048
  3. NORVASC [Concomitant]
     Route: 048
  4. BUFFERIN [Concomitant]
     Route: 048
     Dates: start: 20020412
  5. EPADEL [Concomitant]
     Route: 048
     Dates: start: 20060929
  6. URSO [Concomitant]
     Route: 048
  7. SUCRALFATE [Concomitant]
     Route: 048
     Dates: start: 20041210
  8. CLARITIN REDITABS [Concomitant]
     Route: 048
     Dates: start: 20060116
  9. ZADITEN [Concomitant]
     Route: 048
     Dates: start: 20060116
  10. LAXOBERON [Concomitant]
     Route: 048
  11. LOCOID [Concomitant]
     Route: 061
  12. CLOBETASONE BUTYRATE [Concomitant]
     Route: 061

REACTIONS (6)
  - DYSSTASIA [None]
  - FALL [None]
  - HEART RATE INCREASED [None]
  - PYELONEPHRITIS [None]
  - RHABDOMYOLYSIS [None]
  - URINARY TRACT INFECTION [None]
